FAERS Safety Report 17524533 (Version 1)
Quarter: 2020Q1

REPORT INFORMATION
  Report Type: Spontaneous
  Country: GB (occurrence: GB)
  Receive Date: 20200311
  Receipt Date: 20200311
  Transmission Date: 20200409
  Serious: Yes (Life-Threatening)
  Sender: FDA-Public Use
  Company Number: GB-TEVA-2020-GB-1196329

PATIENT
  Age: 34 Year
  Sex: Female
  Weight: 144 kg

DRUGS (12)
  1. LONGTEC [Concomitant]
     Active Substance: OXYCODONE HYDROCHLORIDE
     Dosage: 1 DOSAGE FORM
     Dates: start: 20200123
  2. CYCLIZINE [Concomitant]
     Active Substance: CYCLIZINE
     Dosage: 3 DOSAGE FORMS, AS DIRECTED
     Dates: start: 20200123
  3. GABAPENTIN. [Concomitant]
     Active Substance: GABAPENTIN
     Dosage: 9 DOSAGE FORMS
     Dates: start: 20200123
  4. QUETIAPINE. [Concomitant]
     Active Substance: QUETIAPINE
     Dosage: 6 DOSAGE FORMS, TAKE ONE IN THE MORNING AND 5 AT NIGHT
     Dates: start: 20200123
  5. VENLAFAXINE [Concomitant]
     Active Substance: VENLAFAXINE HYDROCHLORIDE
     Dosage: 2 DOSAGE FORMS
     Dates: start: 20200123
  6. ZOPICLONE [Concomitant]
     Active Substance: ZOPICLONE
     Dosage: 2 DOSAGE FORMS, AT NIGHT
     Dates: start: 20200123
  7. VENSIR XL PROLONGED RELEASE [Concomitant]
     Active Substance: VENLAFAXINE HYDROCHLORIDE
     Dosage: 1 DOSAGE FORM
     Dates: start: 20200123
  8. OMEPRAZOLE. [Concomitant]
     Active Substance: OMEPRAZOLE
     Dosage: 1 DOSAGE FORM
     Dates: start: 20200123
  9. SHORTEC [Concomitant]
     Active Substance: OXYCODONE HYDROCHLORIDE
     Dosage: 8 DOSAGE FORMS
     Dates: start: 20200123
  10. METOCLOPRAMIDE. [Suspect]
     Active Substance: METOCLOPRAMIDE
     Dosage: 30 MG
     Route: 065
     Dates: start: 20200123
  11. PROPRANOLOL [Concomitant]
     Active Substance: PROPRANOLOL HYDROCHLORIDE
     Dosage: 1 DOSAGE FORM
     Dates: start: 20200123
  12. LEVOTHYROXINE. [Concomitant]
     Active Substance: LEVOTHYROXINE
     Dosage: 1 DOSAGE FORM
     Dates: start: 20200123

REACTIONS (1)
  - Anaphylactic reaction [Recovered/Resolved]

NARRATIVE: CASE EVENT DATE: 20200123
